FAERS Safety Report 24076995 (Version 3)
Quarter: 2024Q3

REPORT INFORMATION
  Report Type: Report from Study
  Country: ZA (occurrence: ZA)
  Receive Date: 20240711
  Receipt Date: 20240806
  Transmission Date: 20241017
  Serious: Yes (Congenital Anomaly)
  Sender: HETERO
  Company Number: ZA-HETERO-HET2024ZA02145

PATIENT
  Sex: Female
  Weight: 3.88 kg

DRUGS (2)
  1. DOLUTEGRAVIR\LAMIVUDINE\TENOFOVIR DISOPROXIL FUMARATE [Suspect]
     Active Substance: DOLUTEGRAVIR\LAMIVUDINE\TENOFOVIR DISOPROXIL FUMARATE
     Indication: Product used for unknown indication
     Dosage: 650 MILLIGRAM, QD (1 COURSE)
     Route: 064
     Dates: start: 20210301
  2. DOLUTEGRAVIR [Suspect]
     Active Substance: DOLUTEGRAVIR
     Indication: Product used for unknown indication
     Dosage: 50 MILLIGRAM, QD (1 COURSE)
     Route: 064
     Dates: start: 20240513, end: 20240624

REACTIONS (3)
  - Talipes [Unknown]
  - Congenital naevus [Unknown]
  - Foetal exposure during pregnancy [Unknown]
